FAERS Safety Report 5631982-8 (Version None)
Quarter: 2008Q1

REPORT INFORMATION
  Report Type: 
  Country: None (occurrence: None)
  Receive Date: 20080220
  Receipt Date: 20080214
  Transmission Date: 20080703
  Serious: Yes (Other)
  Sender: FDA-Public Use
  Company Number: GB-TEVA-167577ISR

PATIENT
  Age: 34 Year
  Sex: Male

DRUGS (2)
  1. CITALOPRAM HYDROBROMIDE [Suspect]
     Route: 048
  2. VARENICLINE TARTRATE [Interacting]
     Indication: SMOKING CESSATION THERAPY
     Route: 048

REACTIONS (2)
  - DRUG INTERACTION [None]
  - MANIA [None]
